FAERS Safety Report 14435816 (Version 1)
Quarter: 2018Q1

REPORT INFORMATION
  Report Type: Spontaneous
  Country: US (occurrence: US)
  Receive Date: 20180124
  Receipt Date: 20180124
  Transmission Date: 20180509
  Serious: No
  Sender: FDA-Public Use
  Company Number: None

PATIENT
  Age: 47 Year
  Sex: Female
  Weight: 96.75 kg

DRUGS (3)
  1. NEURONTIN [Concomitant]
     Active Substance: GABAPENTIN
  2. OMEPRAZOLE. [Concomitant]
     Active Substance: OMEPRAZOLE
  3. SUBOXONE [Suspect]
     Active Substance: BUPRENORPHINE HYDROCHLORIDE\NALOXONE HYDROCHLORIDE
     Indication: DRUG DEPENDENCE
     Dosage: QUANTITY:30 30;?
     Route: 060
     Dates: start: 20120415

REACTIONS (5)
  - Tongue movement disturbance [None]
  - Aphthous ulcer [None]
  - Candida infection [None]
  - Hypophagia [None]
  - Tongue exfoliation [None]

NARRATIVE: CASE EVENT DATE: 20180123
